FAERS Safety Report 5442356-7 (Version None)
Quarter: 2007Q3

REPORT INFORMATION
  Report Type: 
  Country: None (occurrence: None)
  Receive Date: 20070904
  Receipt Date: 20070823
  Transmission Date: 20080115
  Serious: Yes (Other)
  Sender: FDA-Public Use
  Company Number: JP-PFIZER INC-2007070778

PATIENT
  Age: 32 Month
  Sex: Male

DRUGS (4)
  1. PHENYTOIN [Suspect]
     Indication: PARTIAL SEIZURES
  2. PHENYTOIN [Suspect]
     Indication: STATUS EPILEPTICUS
  3. PHENOBARBITAL TAB [Suspect]
     Indication: PARTIAL SEIZURES
  4. PHENOBARBITAL TAB [Suspect]
     Indication: STATUS EPILEPTICUS

REACTIONS (5)
  - B-LYMPHOCYTE COUNT DECREASED [None]
  - HYPOGAMMAGLOBULINAEMIA [None]
  - PARTIAL SEIZURES [None]
  - PYREXIA [None]
  - RASH MACULO-PAPULAR [None]
